FAERS Safety Report 20998721 (Version 1)
Quarter: 2022Q2

REPORT INFORMATION
  Report Type: Spontaneous
  Country: GB (occurrence: GR)
  Receive Date: 20220623
  Receipt Date: 20220623
  Transmission Date: 20220721
  Serious: Yes (Death, Other)
  Sender: FDA-Public Use
  Company Number: GR-ACRAF SpA-2022-028080

PATIENT

DRUGS (10)
  1. LATUDA [Suspect]
     Active Substance: LURASIDONE HYDROCHLORIDE
     Indication: Psychotic disorder
     Dosage: UNK
     Route: 065
     Dates: start: 20220614
  2. VENLAFAXINE [Concomitant]
     Active Substance: VENLAFAXINE HYDROCHLORIDE
     Indication: Depression
     Dosage: 1 TABLET/DAY
     Route: 065
  3. VENLAFAXINE [Concomitant]
     Active Substance: VENLAFAXINE HYDROCHLORIDE
     Indication: Psychotic disorder
  4. MINITRAN [Concomitant]
     Active Substance: NITROGLYCERIN
     Indication: Depression
     Dosage: 3 TABLET/DAY
     Route: 065
  5. MINITRAN [Concomitant]
     Active Substance: NITROGLYCERIN
     Indication: Psychotic disorder
  6. PRAZEPAM [Concomitant]
     Active Substance: PRAZEPAM
     Indication: Depression
     Dosage: 3 TABLET/DAY
     Route: 065
  7. PRAZEPAM [Concomitant]
     Active Substance: PRAZEPAM
     Indication: Psychotic disorder
  8. METFORMIN HYDROCHLORIDE\VILDAGLIPTIN [Concomitant]
     Active Substance: METFORMIN HYDROCHLORIDE\VILDAGLIPTIN
     Indication: Diabetes mellitus
     Dosage: UNK
     Route: 065
  9. ATENOLOL [Concomitant]
     Active Substance: ATENOLOL
     Indication: Hypertension
     Dosage: UNK
     Route: 065
  10. THYRO 4 [Concomitant]
     Indication: Goitre
     Dosage: UNK
     Route: 065

REACTIONS (6)
  - Hyperhidrosis [Fatal]
  - Chest pain [Fatal]
  - Cardiac arrest [Fatal]
  - Tachycardia [Fatal]
  - Syncope [Fatal]
  - Off label use [Fatal]

NARRATIVE: CASE EVENT DATE: 20220615
